FAERS Safety Report 17475682 (Version 1)
Quarter: 2020Q1

REPORT INFORMATION
  Report Type: Report from Study
  Country: CA (occurrence: CA)
  Receive Date: 20200228
  Receipt Date: 20200228
  Transmission Date: 20200409
  Serious: Yes (Other)
  Sender: FDA-Public Use
  Company Number: CA-JNJFOC-20190723454

PATIENT
  Sex: Female
  Weight: 88 kg

DRUGS (1)
  1. STELARA [Suspect]
     Active Substance: USTEKINUMAB
     Indication: PSORIASIS
     Route: 058
     Dates: start: 20190318

REACTIONS (7)
  - Psoriasis [Not Recovered/Not Resolved]
  - Influenza like illness [Unknown]
  - Nausea [Unknown]
  - Diarrhoea [Unknown]
  - Fungal infection [Unknown]
  - Lichen sclerosus [Unknown]
  - Respiratory disorder [Recovering/Resolving]
